FAERS Safety Report 6764337-3 (Version None)
Quarter: 2010Q2

REPORT INFORMATION
  Report Type: 
  Country: None (occurrence: None)
  Receive Date: 20100610
  Receipt Date: 20100420
  Transmission Date: 20101027
  Serious: Yes (Hospitalization, Disabling)
  Sender: FDA-Public Use
  Company Number: US-BAYER-200938999NA

PATIENT
  Age: 45 Year
  Sex: Female
  Weight: 86 kg

DRUGS (6)
  1. YASMIN [Suspect]
     Indication: DRUG USE FOR UNKNOWN INDICATION
     Route: 048
     Dates: start: 20070301, end: 20070401
  2. BENICAR [Concomitant]
     Dates: start: 20070101
  3. IBUPROFEN [Concomitant]
  4. ZOCOR [Concomitant]
     Dates: start: 20080101
  5. XANAX [Concomitant]
     Dates: start: 20050101
  6. ADVIL LIQUI-GELS [Concomitant]

REACTIONS (2)
  - SKIN DISCOLOURATION [None]
  - THROMBOSIS [None]
